FAERS Safety Report 5203596-5 (Version None)
Quarter: 2006Q4

REPORT INFORMATION
  Report Type: 
  Country: None (occurrence: None)
  Receive Date: 20061027
  Receipt Date: 20060503
  Transmission Date: 20070319
  Serious: Yes (Hospitalization, Other)
  Sender: FDA-Public Use
  Company Number: HQWYE165104MAY06

PATIENT
  Age: 42 Year
  Sex: Female
  Weight: 87.62 kg

DRUGS (1)
  1. PREMARIN [Suspect]
     Indication: MENOPAUSAL SYMPTOMS
     Dosage: 0.625 MG 1 X PER 1 DAY, ORAL
     Route: 048
     Dates: start: 20060301, end: 20060503

REACTIONS (1)
  - PULMONARY EMBOLISM [None]
